FAERS Safety Report 4741515-6 (Version None)
Quarter: 2005Q3

REPORT INFORMATION
  Report Type: 
  Country: None (occurrence: None)
  Receive Date: 20050808
  Receipt Date: 20050729
  Transmission Date: 20060218
  Serious: No
  Sender: FDA-Public Use
  Company Number: 11949

PATIENT
  Age: 56 Year
  Sex: Female

DRUGS (7)
  1. METHOTREXATE [Suspect]
  2. AMOXICILLIN AND CLAVULANATE POTASSIUM [Suspect]
  3. ADALIMUMAB [Suspect]
  4. FLUOXETINE [Suspect]
  5. ROFECOXIB [Concomitant]
     Dosage: PO
     Route: 048
  6. DIHYDROCODEINE [Suspect]
  7. OESTRONE [Suspect]

REACTIONS (1)
  - RETINAL HAEMORRHAGE [None]
